FAERS Safety Report 11248165 (Version 1)
Quarter: 2015Q3

REPORT INFORMATION
  Report Type: Spontaneous
  Country: US (occurrence: None)
  Receive Date: 20150707
  Receipt Date: 20150707
  Transmission Date: 20151125
  Serious: Yes (Disabling)
  Sender: FDA-Public Use
  Company Number: None

PATIENT
  Age: 82 Year
  Sex: Female
  Weight: 54.43 kg

DRUGS (7)
  1. PRESERVISION [Concomitant]
     Active Substance: MINERALS\VITAMINS
  2. CITRACAL [Concomitant]
     Active Substance: CALCIUM CITRATE
  3. FOLIC ACID. [Concomitant]
     Active Substance: FOLIC ACID
  4. CLIMARA PRO [Concomitant]
     Active Substance: ESTRADIOL\LEVONORGESTREL
  5. LISINIPRIL [Concomitant]
  6. ELIQUIS [Suspect]
     Active Substance: APIXABAN
     Indication: ATRIAL FIBRILLATION
     Dosage: 30 ONCE DAILY TAKEN BY MOUTH
     Route: 048
     Dates: start: 20150529, end: 20150530
  7. VITAMIN C [Concomitant]
     Active Substance: ASCORBIC ACID

REACTIONS (3)
  - Pain in extremity [None]
  - Joint swelling [None]
  - Insomnia [None]

NARRATIVE: CASE EVENT DATE: 20150529
